FAERS Safety Report 14358832 (Version 1)
Quarter: 2018Q1

REPORT INFORMATION
  Report Type: Spontaneous
  Country: US (occurrence: US)
  Receive Date: 20180105
  Receipt Date: 20180105
  Transmission Date: 20180509
  Serious: No
  Sender: FDA-Public Use
  Company Number: US-SA-2017SA265451

PATIENT
  Sex: Female

DRUGS (1)
  1. DUPIXENT [Suspect]
     Active Substance: DUPILUMAB
     Route: 058

REACTIONS (6)
  - Malaise [Unknown]
  - Eye swelling [Unknown]
  - Eye irritation [Unknown]
  - Nasopharyngitis [Unknown]
  - Cough [Unknown]
  - Visual impairment [Unknown]
